FAERS Safety Report 8839383 (Version 1)
Quarter: 2012Q4

REPORT INFORMATION
  Report Type: Spontaneous
  Country: US (occurrence: None)
  Receive Date: 20121012
  Receipt Date: 20121012
  Transmission Date: 20130627
  Serious: Yes (Disabling)
  Sender: FDA-Public Use
  Company Number: None

PATIENT
  Age: 59 Year
  Sex: Female
  Weight: 82.1 kg

DRUGS (1)
  1. CYMBALTA [Suspect]
     Indication: NERVE PAIN
     Route: 048
     Dates: start: 20090501, end: 20120907

REACTIONS (7)
  - Panic attack [None]
  - Retching [None]
  - Hyperhidrosis [None]
  - Nightmare [None]
  - Anxiety [None]
  - Feeling abnormal [None]
  - Dependence [None]
